FAERS Safety Report 16286551 (Version 1)
Quarter: 2019Q2

REPORT INFORMATION
  Report Type: Spontaneous
  Country: US (occurrence: US)
  Receive Date: 20190508
  Receipt Date: 20190508
  Transmission Date: 20190711
  Serious: No
  Sender: FDA-Public Use
  Company Number: US-PFIZER INC-2019193245

PATIENT
  Age: 78 Year
  Sex: Female
  Weight: 68.3 kg

DRUGS (2)
  1. XELJANZ XR [Suspect]
     Active Substance: TOFACITINIB CITRATE
     Indication: RHEUMATOID ARTHRITIS
     Dosage: 11 MG, DAILY
     Route: 048
  2. PROLIA [Concomitant]
     Active Substance: DENOSUMAB
     Dosage: UNK
     Dates: start: 201804

REACTIONS (1)
  - Joint dislocation [Unknown]
